FAERS Safety Report 7277135-1 (Version None)
Quarter: 2011Q1

REPORT INFORMATION
  Report Type: 
  Country: None (occurrence: None)
  Receive Date: 20110202
  Receipt Date: 20110202
  Transmission Date: 20110831
  Serious: No
  Sender: FDA-Public Use
  Company Number: None

PATIENT
  Age: 53 Year
  Sex: Female
  Weight: 66.2252 kg

DRUGS (4)
  1. TAXOL [Concomitant]
  2. CARBOPLATIN 600MG VIAL APP PHARM [Suspect]
     Indication: LUNG NEOPLASM MALIGNANT
     Dosage: 200MG IV QWX3
     Route: 042
     Dates: start: 20090608, end: 20090930
  3. CARBOPLATIN 600MG VIAL APP PHARM [Suspect]
     Indication: LUNG NEOPLASM MALIGNANT
     Dosage: 200MG IV QWX3
     Route: 042
     Dates: start: 20110131
  4. AVASTIN [Concomitant]

REACTIONS (6)
  - HYPERHIDROSIS [None]
  - HEART RATE INCREASED [None]
  - VOMITING [None]
  - NAUSEA [None]
  - DIZZINESS [None]
  - OXYGEN SATURATION DECREASED [None]
